FAERS Safety Report 7296848-9 (Version None)
Quarter: 2011Q1

REPORT INFORMATION
  Report Type: 
  Country: None (occurrence: None)
  Receive Date: 20110204
  Receipt Date: 20110126
  Transmission Date: 20110831
  Serious: Yes (Life-Threatening, Hospitalization, Other)
  Sender: FDA-Public Use
  Company Number: 011769

PATIENT
  Age: 87 Year
  Sex: Female
  Weight: 42 kg

DRUGS (10)
  1. HOKUNALIN:TAPE (TULOBUTEROL) [Concomitant]
  2. FAMOTIDINE D (FAMOTIDINE) [Concomitant]
  3. PLETAL [Suspect]
     Indication: BRADYCARDIA
     Dosage: 100 MG, BID, ORAL
     Route: 048
     Dates: start: 20101026, end: 20101104
  4. SLOW-FE (FERROUS SULFATE) [Concomitant]
  5. ALFAROL (ALDACALCIDOL) [Concomitant]
  6. SEROQUEL UNKN (QUETIAPINE FUMARATE) [Concomitant]
  7. MAGNESIUM OXIDE (MAGNESIUM OXIDE) [Concomitant]
  8. ALOSENN (SENNA LEAF_SENNA POD) [Concomitant]
  9. CO-DIO (VALSARTAN_HYDROCHLOROTHIAZIDE COMBINED DRUG) [Concomitant]
  10. ALOTEC (ORCIPRENALINE SULFATE) [Concomitant]

REACTIONS (7)
  - CARDIAC FAILURE [None]
  - SINUS TACHYCARDIA [None]
  - VOMITING [None]
  - BLOOD PRESSURE INCREASED [None]
  - WHEEZING [None]
  - CARDIAC FAILURE CONGESTIVE [None]
  - OEDEMA PERIPHERAL [None]
